FAERS Safety Report 17851431 (Version 1)
Quarter: 2020Q2

REPORT INFORMATION
  Report Type: Spontaneous
  Country: CH (occurrence: CH)
  Receive Date: 20200602
  Receipt Date: 20200602
  Transmission Date: 20200714
  Serious: Yes (Death, Life-Threatening, Hospitalization, Other)
  Sender: FDA-Public Use
  Company Number: CH-PFIZER INC-2020210811

PATIENT
  Age: 52 Year
  Sex: Female

DRUGS (4)
  1. DAFALGAN [Suspect]
     Active Substance: ACETAMINOPHEN
     Indication: SUICIDE ATTEMPT
     Dosage: 80 G, IN TOTAL
     Route: 048
     Dates: start: 20180922, end: 20180922
  2. RISPERDAL [Concomitant]
     Active Substance: RISPERIDONE
     Dosage: 2 MG, 2X/DAY 1-0-1
     Route: 048
     Dates: end: 20180915
  3. TEMESTA (LORAZEPAM) [Suspect]
     Active Substance: LORAZEPAM
     Indication: SUICIDE ATTEMPT
     Dosage: 40 MG, IN TOTAL
     Route: 048
     Dates: start: 20180922, end: 20180922
  4. CYMBALTA [Concomitant]
     Active Substance: DULOXETINE HYDROCHLORIDE
     Dosage: 60 MG, MG 0-1-0
     Route: 048
     Dates: end: 20180915

REACTIONS (7)
  - Somnolence [Recovered/Resolved]
  - Alanine aminotransferase increased [Recovering/Resolving]
  - Suicide attempt [Recovered/Resolved]
  - Aspartate aminotransferase increased [Recovering/Resolving]
  - Death [Fatal]
  - Toxicity to various agents [Recovered/Resolved]
  - Drug-induced liver injury [Recovering/Resolving]

NARRATIVE: CASE EVENT DATE: 20180922
